FAERS Safety Report 19982749 (Version 2)
Quarter: 2021Q4

REPORT INFORMATION
  Report Type: Report from Study
  Country: US (occurrence: US)
  Receive Date: 20211022
  Receipt Date: 20211218
  Transmission Date: 20220303
  Serious: No
  Sender: FDA-Public Use
  Company Number: US-NOVARTISTESTPH-NVSC2021US241284

PATIENT
  Age: 54 Year
  Sex: Female

DRUGS (1)
  1. PROMACTA [Suspect]
     Active Substance: ELTROMBOPAG OLAMINE
     Dosage: UNK
     Route: 065

REACTIONS (13)
  - Adverse drug reaction [Unknown]
  - Infusion related reaction [Unknown]
  - Rash [Unknown]
  - Headache [Unknown]
  - Vision blurred [Unknown]
  - Abdominal pain upper [Unknown]
  - Nausea [Unknown]
  - Blood pressure increased [Unknown]
  - Hair growth abnormal [Unknown]
  - Joint swelling [Unknown]
  - Muscle spasms [Unknown]
  - Dizziness [Unknown]
  - Confusional state [Unknown]
